FAERS Safety Report 10373744 (Version 1)
Quarter: 2014Q1

REPORT INFORMATION
  Report Type: Spontaneous
  Country: US (occurrence: None)
  Receive Date: 20140306
  Receipt Date: 20140306
  Transmission Date: 20141002
  Serious: Yes (Hospitalization)
  Sender: FDA-Public Use
  Company Number: 163-21880-13051802

PATIENT
  Age: 67 Year
  Sex: Male

DRUGS (2)
  1. REVLIMID (LENALIDOMIDE) (10 MILLIGRAM, CAPSULES) [Suspect]
     Indication: CHRONIC LYMPHOCYTIC LEUKAEMIA
     Dosage: 21 IN 21 D
     Route: 048
     Dates: start: 201303
  2. RITUXAN (RITUXIMAB) [Concomitant]

REACTIONS (4)
  - Pancytopenia [None]
  - Pyrexia [None]
  - Malaise [None]
  - Confusional state [None]
